FAERS Safety Report 8808052 (Version 1)
Quarter: 2012Q4

REPORT INFORMATION
  Report Type: 
  Country: DE (occurrence: DE)
  Receive Date: 20120925
  Receipt Date: 20120925
  Transmission Date: 20130627
  Serious: Yes (Death, Life-Threatening)
  Sender: FDA-Public Use
  Company Number: DE-BRISTOL-MYERS SQUIBB COMPANY-16970071

PATIENT
  Age: 79 Year
  Sex: Female

DRUGS (8)
  1. METFORMIN HCL [Suspect]
     Indication: TYPE 2 DIABETES MELLITUS
     Route: 048
  2. ACETYLSALICILIC ACID [Concomitant]
     Dosage: 1df=100 units not specied
  3. METOPROLOL [Concomitant]
     Dosage: 1df=95 units not specied
  4. CYANOCOBALAMIN [Concomitant]
     Dosage: inj
     Route: 058
  5. KEPPRA [Concomitant]
     Dosage: 1df=500 units not specied
  6. NOVALGIN [Concomitant]
     Dosage: Novalgin tropfen
1df=30Gtt 
drops
  7. FURO [Concomitant]
     Dosage: 1.5df=40 units not specied
  8. TRAMAL [Concomitant]
     Dosage: 1df=100 units not specied

REACTIONS (2)
  - Renal failure acute [Fatal]
  - Lactic acidosis [Fatal]
